FAERS Safety Report 10385754 (Version 1)
Quarter: 2014Q3

REPORT INFORMATION
  Report Type: Spontaneous
  Country: GB (occurrence: None)
  Receive Date: 20140812
  Receipt Date: 20140812
  Transmission Date: 20150326
  Serious: Yes (Hospitalization)
  Sender: FDA-Public Use
  Company Number: GB-MDCO-14-00173

PATIENT
  Age: 73 Year
  Sex: Male

DRUGS (5)
  1. HYDROCORTISONE (HYDROCORTISONE) (HYDROCORTISONE) [Concomitant]
     Active Substance: HYDROCORTISONE
  2. ASPIRIN. [Suspect]
     Active Substance: ASPIRIN
     Indication: PRODUCT USED FOR UNKNOWN INDICATION
     Route: 048
  3. BIVALIRUDIN [Suspect]
     Active Substance: BIVALIRUDIN
     Indication: PERCUTANEOUS CORONARY INTERVENTION
     Route: 040
     Dates: start: 20140131, end: 20140131
  4. TICAGRELOR [Suspect]
     Active Substance: TICAGRELOR
     Indication: PRODUCT USED FOR UNKNOWN INDICATION
     Route: 048
     Dates: start: 20140131, end: 20140131
  5. HEPARIN (HEPARIN) (HEPARIN) [Concomitant]

REACTIONS (1)
  - Drug hypersensitivity [None]

NARRATIVE: CASE EVENT DATE: 20140131
